FAERS Safety Report 4441306-X (Version None)
Quarter: 2004Q3

REPORT INFORMATION
  Report Type: 
  Country: None (occurrence: None)
  Receive Date: 20040728
  Receipt Date: 20040329
  Transmission Date: 20050211
  Serious: No
  Sender: FDA-Public Use
  Company Number: USA040363404

PATIENT
  Age: 33 Year
  Sex: Male
  Weight: 98 kg

DRUGS (1)
  1. STRATTERA [Suspect]
     Indication: ATTENTION DEFICIT/HYPERACTIVITY DISORDER
     Dosage: 60 MG DAY
     Dates: start: 20040101, end: 20040325

REACTIONS (5)
  - ANOREXIA [None]
  - CRYING [None]
  - DRUG INEFFECTIVE [None]
  - MOOD SWINGS [None]
  - WEIGHT DECREASED [None]
